FAERS Safety Report 7115274-6 (Version None)
Quarter: 2010Q4

REPORT INFORMATION
  Report Type: 
  Country: None (occurrence: None)
  Receive Date: 20101117
  Receipt Date: 20101117
  Transmission Date: 20110411
  Serious: Yes (Hospitalization, Other)
  Sender: FDA-Public Use
  Company Number: None

PATIENT
  Sex: Male
  Weight: 122.7 kg

DRUGS (1)
  1. NABUMETONE [Suspect]
     Indication: PAIN IN EXTREMITY
     Dosage: 1 PILL 2X DAY ORAL
     Route: 048
     Dates: start: 20090719, end: 20090723

REACTIONS (4)
  - ABDOMINAL PAIN [None]
  - GASTROINTESTINAL INFECTION [None]
  - LARGE INTESTINE PERFORATION [None]
  - PAIN IN EXTREMITY [None]
